FAERS Safety Report 14680207 (Version 2)
Quarter: 2018Q2

REPORT INFORMATION
  Report Type: Spontaneous
  Country: US (occurrence: US)
  Receive Date: 20180326
  Receipt Date: 20180521
  Transmission Date: 20180711
  Serious: Yes (Other)
  Sender: FDA-Public Use
  Company Number: US-PFIZER INC-2017114344

PATIENT
  Age: 50 Year
  Sex: Female
  Weight: 83.91 kg

DRUGS (6)
  1. GENOTROPIN [Suspect]
     Active Substance: SOMATROPIN
     Indication: HORMONE THERAPY
     Dosage: UNK
     Dates: end: 201802
  2. GENOTROPIN [Suspect]
     Active Substance: SOMATROPIN
     Indication: HYPOPITUITARISM
     Dosage: 5 MG, UNK
     Dates: start: 201507
  3. GENOTROPIN [Suspect]
     Active Substance: SOMATROPIN
     Indication: BONE DENSITY DECREASED
  4. GENOTROPIN [Suspect]
     Active Substance: SOMATROPIN
     Dosage: UNK
  5. GENOTROPIN [Suspect]
     Active Substance: SOMATROPIN
     Indication: MUSCLE MASS
     Dosage: 0.4 MG, 1X/DAY, (SHOT IN ROTATED BETWEEN LEG, HIP, STOMACH)
  6. GENOTROPIN [Suspect]
     Active Substance: SOMATROPIN
     Indication: ADDISON^S DISEASE
     Dosage: 4 MG, DAILY
     Dates: start: 2016

REACTIONS (11)
  - Infection [Unknown]
  - Muscle swelling [Unknown]
  - Atelectasis [Unknown]
  - Lupus-like syndrome [Unknown]
  - Mixed connective tissue disease [Not Recovered/Not Resolved]
  - Haematuria [Unknown]
  - Fibromyalgia [Not Recovered/Not Resolved]
  - Condition aggravated [Unknown]
  - Drug dose omission [Not Recovered/Not Resolved]
  - Dysphonia [Unknown]
  - Joint swelling [Unknown]

NARRATIVE: CASE EVENT DATE: 2017
